FAERS Safety Report 11357823 (Version 1)
Quarter: 2015Q3

REPORT INFORMATION
  Report Type: Spontaneous
  Country: US (occurrence: US)
  Receive Date: 20150803
  Receipt Date: 20150803
  Transmission Date: 20151125
  Serious: No
  Sender: FDA-Public Use
  Company Number: US-ELI_LILLY_AND_COMPANY-US201101000873

PATIENT
  Sex: Male

DRUGS (16)
  1. OMEPRAZOLE. [Concomitant]
     Active Substance: OMEPRAZOLE
  2. LORAZEPAM. [Concomitant]
     Active Substance: LORAZEPAM
  3. LAMOTRIGIN [Concomitant]
     Active Substance: LAMOTRIGINE
  4. ZYPREXA [Suspect]
     Active Substance: OLANZAPINE
     Indication: DEPRESSION
     Dosage: 25 MG, DAILY (1/D)
     Dates: start: 1998
  5. FEXOFENADINE [Concomitant]
     Active Substance: FEXOFENADINE\FEXOFENADINE HYDROCHLORIDE
  6. BENZTROPINE [Concomitant]
     Active Substance: BENZTROPINE
  7. LEVOTHYROXINE. [Concomitant]
     Active Substance: LEVOTHYROXINE
  8. HUMATROPE [Concomitant]
     Active Substance: SOMATROPIN
     Indication: DWARFISM
     Dosage: 0.6 MG, DAILY (1/D)
     Dates: start: 2001
  9. SIMVASTATIN. [Concomitant]
     Active Substance: SIMVASTATIN
  10. FLUTICASONE [Concomitant]
     Active Substance: FLUTICASONE\FLUTICASONE PROPIONATE
  11. CYPROHEPTADINE. [Concomitant]
     Active Substance: CYPROHEPTADINE
  12. TESTOSTERONE. [Concomitant]
     Active Substance: TESTOSTERONE
  13. TEMAZEPAM. [Concomitant]
     Active Substance: TEMAZEPAM
  14. HYDROCORTISONE. [Concomitant]
     Active Substance: HYDROCORTISONE
  15. MELATONIN [Concomitant]
     Active Substance: MELATONIN
  16. RANITIDINE [Concomitant]
     Active Substance: RANITIDINE\RANITIDINE HYDROCHLORIDE

REACTIONS (4)
  - Feeling abnormal [Unknown]
  - Prescribed overdose [Not Recovered/Not Resolved]
  - Off label use [Not Recovered/Not Resolved]
  - Dizziness [Unknown]

NARRATIVE: CASE EVENT DATE: 1998
